FAERS Safety Report 8450902-4 (Version None)
Quarter: 2012Q2

REPORT INFORMATION
  Report Type: 
  Country: None (occurrence: None)
  Receive Date: 20120620
  Receipt Date: 20120611
  Transmission Date: 20120825
  Serious: Yes (Other)
  Sender: FDA-Public Use
  Company Number: US-ASTRAZENECA-2012SE39067

PATIENT
  Age: 86 Year
  Sex: Female
  Weight: 74.8 kg

DRUGS (3)
  1. SYMBICORT [Suspect]
     Indication: EMPHYSEMA
     Dosage: 2 PUFFS, BID
     Route: 055
  2. ARIMIDEX [Suspect]
     Indication: BREAST CANCER
     Route: 048
  3. ASPIRIN [Concomitant]
     Indication: ANTICOAGULANT THERAPY
     Route: 048

REACTIONS (8)
  - BRONCHIAL SECRETION RETENTION [None]
  - INTENTIONAL DRUG MISUSE [None]
  - CATARACT [None]
  - BLINDNESS [None]
  - INSOMNIA [None]
  - COUGH [None]
  - DYSPNOEA [None]
  - SINUS DISORDER [None]
